FAERS Safety Report 16763817 (Version 10)
Quarter: 2020Q4

REPORT INFORMATION
  Report Type: Spontaneous
  Country: US (occurrence: US)
  Receive Date: 20190902
  Receipt Date: 20201118
  Transmission Date: 20210113
  Serious: Yes (Hospitalization, Congenital Anomaly, Other)
  Sender: FDA-Public Use
  Company Number: PHEH2019US036193

PATIENT
  Age: 0 Day
  Sex: Female

DRUGS (2)
  1. ZOFRAN ODT [Suspect]
     Active Substance: ONDANSETRON HYDROCHLORIDE
     Indication: FOETAL EXPOSURE DURING PREGNANCY
     Route: 064
  2. ZOFRAN [Suspect]
     Active Substance: ONDANSETRON HYDROCHLORIDE
     Indication: FOETAL EXPOSURE DURING PREGNANCY
     Route: 064

REACTIONS (76)
  - Pulmonary artery stenosis congenital [Unknown]
  - Cerebral haemorrhage [Unknown]
  - Bacteraemia [Unknown]
  - Back pain [Unknown]
  - Dysuria [Unknown]
  - Chest discomfort [Unknown]
  - Dermatitis [Unknown]
  - Oral herpes [Unknown]
  - Hyperkeratosis [Unknown]
  - Fallot^s tetralogy [Unknown]
  - Heart disease congenital [Unknown]
  - Disseminated intravascular coagulation [Unknown]
  - Acute kidney injury [Unknown]
  - Hyperbilirubinaemia [Unknown]
  - Pulmonary oedema [Unknown]
  - Dehydration [Unknown]
  - Headache [Unknown]
  - Conjunctivitis [Unknown]
  - Atrial tachycardia [Unknown]
  - Ventricular septal defect [Unknown]
  - Cyanosis neonatal [Unknown]
  - Respiratory syncytial virus infection [Unknown]
  - Ingrowing nail [Unknown]
  - Cognitive disorder [Unknown]
  - Hypermetropia [Unknown]
  - Atrial septal defect [Unknown]
  - Patent ductus arteriosus [Unknown]
  - Toxic shock syndrome [Unknown]
  - Mitral valve incompetence [Unknown]
  - Myocarditis [Unknown]
  - Injury [Unknown]
  - Asthma [Unknown]
  - Upper respiratory tract infection [Unknown]
  - Pyrexia [Unknown]
  - Ligament sprain [Unknown]
  - Urinary tract infection [Unknown]
  - Cardiac murmur [Unknown]
  - Cardiomegaly [Unknown]
  - Right ventricle outflow tract obstruction [Unknown]
  - Sepsis [Unknown]
  - Pulmonary valve incompetence [Unknown]
  - Bundle branch block right [Unknown]
  - Decreased appetite [Unknown]
  - Abdominal pain [Unknown]
  - Gastroenteritis [Unknown]
  - Anaemia [Unknown]
  - Otitis externa [Unknown]
  - Fatigue [Unknown]
  - Congenital pulmonary valve atresia [Unknown]
  - Hydrocephalus [Unknown]
  - Wheezing [Unknown]
  - Rash [Unknown]
  - Peripheral swelling [Unknown]
  - Pulmonary hypoplasia [Unknown]
  - Pelvic kidney [Unknown]
  - Hydronephrosis [Unknown]
  - Premature baby [Unknown]
  - Cardiac failure congestive [Unknown]
  - Pleural effusion [Unknown]
  - Low birth weight baby [Unknown]
  - Respiratory distress [Unknown]
  - Right ventricular hypertension [Unknown]
  - Foetal exposure during pregnancy [Unknown]
  - Enuresis [Unknown]
  - Wrist fracture [Unknown]
  - Ovarian cyst [Unknown]
  - Dizziness [Unknown]
  - Renal fusion anomaly [Unknown]
  - Laevocardia [Unknown]
  - Tricuspid valve incompetence [Unknown]
  - Delirium [Unknown]
  - Cerebral ventricle dilatation [Unknown]
  - Arrhythmia [Unknown]
  - Right ventricular hypertrophy [Unknown]
  - Migraine [Unknown]
  - Hypotension [Unknown]

NARRATIVE: CASE EVENT DATE: 19990823
